FAERS Safety Report 12762716 (Version 2)
Quarter: 2017Q2

REPORT INFORMATION
  Report Type: Spontaneous
  Country: PK (occurrence: PK)
  Receive Date: 20160920
  Receipt Date: 20170619
  Transmission Date: 20170830
  Serious: Yes (Other)
  Sender: FDA-Public Use
  Company Number: PK-INCYTE CORPORATION-2016IN005797

PATIENT

DRUGS (1)
  1. JAKAVI [Suspect]
     Active Substance: RUXOLITINIB
     Indication: MYELOFIBROSIS
     Dosage: 15 MG, UNK
     Route: 048

REACTIONS (5)
  - Chest pain [Unknown]
  - Malaise [Unknown]
  - Arthralgia [Unknown]
  - Tuberculosis [Unknown]
  - Fatigue [Unknown]

NARRATIVE: CASE EVENT DATE: 20160903
